FAERS Safety Report 20938928 (Version 1)
Quarter: 2022Q2

REPORT INFORMATION
  Report Type: Spontaneous
  Country: CN (occurrence: CN)
  Receive Date: 20220609
  Receipt Date: 20220609
  Transmission Date: 20220721
  Serious: Yes (Other)
  Sender: FDA-Public Use
  Company Number: CN-SLATE RUN PHARMACEUTICALS-22CN001119

PATIENT

DRUGS (5)
  1. METOPROLOL SUCCINATE [Suspect]
     Active Substance: METOPROLOL SUCCINATE
     Indication: Palpitations
     Dosage: UNK
  2. METOPROLOL SUCCINATE [Suspect]
     Active Substance: METOPROLOL SUCCINATE
     Indication: Ventricular extrasystoles
  3. DESLANOSIDE [Suspect]
     Active Substance: DESLANOSIDE
     Indication: Palpitations
     Dosage: UNK
  4. DESLANOSIDE [Suspect]
     Active Substance: DESLANOSIDE
     Indication: Ventricular extrasystoles
  5. UNSPECIFIED INGREDIENT [Concomitant]
     Active Substance: UNSPECIFIED INGREDIENT
     Indication: Prophylaxis

REACTIONS (4)
  - Ventricular pre-excitation [Recovered/Resolved]
  - Tachycardia [Recovered/Resolved]
  - Drug ineffective for unapproved indication [Unknown]
  - Off label use [Unknown]
